FAERS Safety Report 8828377 (Version 1)
Quarter: 2012Q4

REPORT INFORMATION
  Report Type: 
  Country: US (occurrence: US)
  Receive Date: 20121005
  Receipt Date: 20121005
  Transmission Date: 20130627
  Serious: Yes (Other)
  Sender: FDA-Public Use
  Company Number: US-ELI_LILLY_AND_COMPANY-US201210001068

PATIENT

DRUGS (1)
  1. HUMATROPE [Suspect]
     Dosage: UNK, unknown

REACTIONS (1)
  - Myocardial infarction [Unknown]
